FAERS Safety Report 9732033 (Version 3)
Quarter: 2014Q1

REPORT INFORMATION
  Report Type: Spontaneous
  Country: US (occurrence: US)
  Receive Date: 20131205
  Receipt Date: 20140131
  Transmission Date: 20141002
  Serious: Yes (Other)
  Sender: FDA-Public Use
  Company Number: US-SA-2013SA125485

PATIENT
  Age: 75 Year
  Sex: Female
  Weight: 55.79 kg

DRUGS (8)
  1. LANTUS SOLOSTAR [Suspect]
     Indication: TYPE 2 DIABETES MELLITUS
     Dosage: DOSE:14 UNIT(S)
     Route: 051
     Dates: start: 201311
  2. PLAVIX [Suspect]
     Route: 065
  3. SOLOSTAR [Concomitant]
     Indication: TYPE 2 DIABETES MELLITUS
     Dates: start: 201304
  4. SYNTHROID [Concomitant]
     Indication: THYROID DISORDER
  5. ESTRACE [Concomitant]
     Indication: HORMONE REPLACEMENT THERAPY
  6. PROVERA [Concomitant]
  7. VASOTEC [Concomitant]
     Indication: HYPERTENSION
  8. HYDROCHLOROTHIAZIDE [Concomitant]
     Indication: HYPERTENSION

REACTIONS (10)
  - Vascular occlusion [Unknown]
  - Haemorrhage [Not Recovered/Not Resolved]
  - Contusion [Not Recovered/Not Resolved]
  - Sciatic nerve neuropathy [Unknown]
  - Mobility decreased [Unknown]
  - Nerve compression [Unknown]
  - Pain [Unknown]
  - Abasia [Unknown]
  - Insomnia [Unknown]
  - Aphagia [Unknown]
